FAERS Safety Report 5714127-5 (Version None)
Quarter: 2008Q2

REPORT INFORMATION
  Report Type: 
  Country: None (occurrence: None)
  Receive Date: 20080422
  Receipt Date: 20080422
  Transmission Date: 20081010
  Serious: Yes (Life-Threatening)
  Sender: FDA-Public Use
  Company Number: None

PATIENT
  Age: 61 Year
  Sex: Female
  Weight: 77.1115 kg

DRUGS (1)
  1. SPIRIVA [Suspect]
     Indication: ASTHMA
     Dosage: 18MCG  1/DAY  INHAL
     Route: 055
     Dates: start: 20080420, end: 20080420

REACTIONS (2)
  - ASTHMA [None]
  - CONDITION AGGRAVATED [None]
